FAERS Safety Report 5167646-7 (Version None)
Quarter: 2006Q4

REPORT INFORMATION
  Report Type: 
  Country: None (occurrence: None)
  Receive Date: 20061208
  Receipt Date: 20061205
  Transmission Date: 20070319
  Serious: Yes (Disabling)
  Sender: FDA-Public Use
  Company Number: FR-SP-2006-03370

PATIENT
  Age: 54 Year
  Sex: Male
  Weight: 71 kg

DRUGS (1)
  1. IMMUCYST [Suspect]
     Indication: IMMUNISATION
     Dosage: MONTHLY
     Route: 043
     Dates: start: 20060808, end: 20060915

REACTIONS (5)
  - ASTHENIA [None]
  - BOVINE TUBERCULOSIS [None]
  - HEPATITIS [None]
  - JAUNDICE [None]
  - PYREXIA [None]
